FAERS Safety Report 9524924 (Version 1)
Quarter: 2013Q1

REPORT INFORMATION
  Report Type: Spontaneous
  Country: US (occurrence: None)
  Receive Date: 20130314
  Receipt Date: 20130314
  Transmission Date: 20140127
  Serious: No
  Sender: FDA-Public Use
  Company Number: 1301USA005473

PATIENT
  Age: 49 Year
  Sex: Male
  Weight: 92.5 kg

DRUGS (10)
  1. VICTRELIS (BOCEPREVIR) CAPSULE, 200MG [Suspect]
     Dosage: 800 MG, Q8H, PO
     Route: 048
  2. PEGASYS [Suspect]
  3. RIBAVIRIN [Suspect]
     Dosage: PO
     Route: 048
  4. XANAX (ALPRAXOLAM) TABLET, 1 MG [Concomitant]
  5. IRON (UNSPECIFIED) (IRON (UNSPECIFIED)) TABLET, 18 MG [Concomitant]
  6. VITAMINS (UNSPECIFIED) (VITAMINS (UNSPECIFIED)) CAPSULE [Concomitant]
  7. ZOFRAN (ONDANSETRON HYDROCHLORIDE) TABLET, 4 MG [Concomitant]
  8. LEXAPRO (ESCITALOPRAM OXALATE) TABLET, 10 MG [Concomitant]
  9. AMBIEN (ZOLPIDEM TARTRATE) TABLET, 5 MG [Concomitant]
  10. TYLENOL (ACETAMINOPHEN) TABELT [Concomitant]

REACTIONS (3)
  - Myalgia [None]
  - Rash [None]
  - Influenza [None]
